FAERS Safety Report 9778484 (Version 1)
Quarter: 2013Q4

REPORT INFORMATION
  Report Type: Spontaneous
  Country: US (occurrence: US)
  Receive Date: 20131223
  Receipt Date: 20131223
  Transmission Date: 20140711
  Serious: No
  Sender: FDA-Public Use
  Company Number: US-BAYER-2013-156304

PATIENT
  Age: 71 Year
  Sex: Female
  Weight: 71 kg

DRUGS (4)
  1. ALEVE GELCAPS [Suspect]
     Indication: BACK PAIN
     Dosage: 2 DF, BID
     Route: 048
  2. ADVAIR [Concomitant]
  3. ZITHROMAX [Concomitant]
  4. SPIRIVA [Concomitant]

REACTIONS (2)
  - Incorrect dose administered [None]
  - Dyspnoea [Not Recovered/Not Resolved]
